FAERS Safety Report 9472543 (Version 2)
Quarter: 2013Q4

REPORT INFORMATION
  Report Type: Spontaneous
  Country: FR (occurrence: FR)
  Receive Date: 20130823
  Receipt Date: 20131018
  Transmission Date: 20140711
  Serious: Yes (Other)
  Sender: FDA-Public Use
  Company Number: FR-ELI_LILLY_AND_COMPANY-FR201308004250

PATIENT
  Age: 46 Year
  Sex: Male

DRUGS (6)
  1. PROZAC [Suspect]
     Indication: DEPRESSION
     Dosage: 1 DF, UNKNOWN
     Route: 048
     Dates: start: 201306
  2. INTELENCE [Suspect]
     Indication: PRODUCT USED FOR UNKNOWN INDICATION
     Dosage: 1 DF, UNKNOWN
     Route: 065
  3. ISENTRESS [Suspect]
     Indication: HIV INFECTION
     Dosage: 1 DF, UNKNOWN
     Route: 048
     Dates: start: 20130613
  4. NORVIR [Suspect]
     Indication: HIV INFECTION
     Dosage: 1 DF, UNKNOWN
     Route: 065
     Dates: start: 20130613
  5. PREZISTA [Suspect]
     Indication: HIV INFECTION
     Dosage: 1 DF, UNKNOWN
     Route: 048
     Dates: start: 20130613
  6. PENTACARINAT [Suspect]
     Indication: PROPHYLAXIS
     Dosage: 1 DF, UNKNOWN
     Route: 065
     Dates: start: 20130618

REACTIONS (1)
  - Hepatocellular injury [Not Recovered/Not Resolved]
